FAERS Safety Report 22270106 (Version 1)
Quarter: 2023Q2

REPORT INFORMATION
  Report Type: Spontaneous
  Country: US (occurrence: None)
  Receive Date: 20230428
  Receipt Date: 20230428
  Transmission Date: 20230721
  Serious: Yes (Disabling)
  Sender: FDA-Public Use
  Company Number: None

PATIENT
  Age: 61 Year
  Sex: Female
  Weight: 91.35 kg

DRUGS (7)
  1. OZEMPIC [Suspect]
     Active Substance: SEMAGLUTIDE
     Indication: Diabetes mellitus
     Dates: start: 20230317, end: 20230428
  2. METFORMIN [Concomitant]
     Active Substance: METFORMIN HYDROCHLORIDE
  3. SYNTHROID [Concomitant]
     Active Substance: LEVOTHYROXINE SODIUM
  4. NEXIUM [Concomitant]
     Active Substance: ESOMEPRAZOLE MAGNESIUM
  5. MELOXICAM [Concomitant]
     Active Substance: MELOXICAM
  6. VITAMIN D3 [Concomitant]
     Active Substance: CHOLECALCIFEROL
  7. CALCIUM [Concomitant]
     Active Substance: CALCIUM

REACTIONS (14)
  - Nausea [None]
  - Dyspepsia [None]
  - Constipation [None]
  - Headache [None]
  - Therapy change [None]
  - Alopecia [None]
  - Flushing [None]
  - Flushing [None]
  - Erythema [None]
  - Injection related reaction [None]
  - Dry eye [None]
  - Vision blurred [None]
  - Pruritus [None]
  - Eye injury [None]

NARRATIVE: CASE EVENT DATE: 20230414
